FAERS Safety Report 25208849 (Version 1)
Quarter: 2025Q2

REPORT INFORMATION
  Report Type: Spontaneous
  Country: AU (occurrence: AU)
  Receive Date: 20250417
  Receipt Date: 20250417
  Transmission Date: 20250717
  Serious: Yes (Hospitalization)
  Sender: BRISTOL MYERS SQUIBB
  Company Number: AU-BRISTOL-MYERS SQUIBB COMPANY-2025-055640

PATIENT
  Sex: Male

DRUGS (1)
  1. CAMZYOS [Suspect]
     Active Substance: MAVACAMTEN
     Indication: Product used for unknown indication
     Route: 048
     Dates: start: 2024

REACTIONS (4)
  - Dizziness postural [Not Recovered/Not Resolved]
  - Fall [Unknown]
  - Skin laceration [Unknown]
  - Blood pressure decreased [Unknown]
